FAERS Safety Report 7656500-4 (Version None)
Quarter: 2011Q3

REPORT INFORMATION
  Report Type: 
  Country: None (occurrence: None)
  Receive Date: 20110804
  Receipt Date: 20100830
  Transmission Date: 20111222
  Serious: No
  Sender: FDA-Public Use
  Company Number: US-BAUSCH-2010BL004867

PATIENT
  Sex: Female

DRUGS (2)
  1. OPCON-A [Suspect]
     Indication: FOREIGN BODY IN EYE
     Route: 047
     Dates: start: 20100830, end: 20100830
  2. OPCON-A [Suspect]
     Indication: OFF LABEL USE
     Route: 047
     Dates: start: 20100830, end: 20100830

REACTIONS (3)
  - MYDRIASIS [None]
  - INCORRECT DOSE ADMINISTERED [None]
  - WRONG DRUG ADMINISTERED [None]
